FAERS Safety Report 9988795 (Version 5)
Quarter: 2014Q4

REPORT INFORMATION
  Report Type: Spontaneous
  Country: US (occurrence: None)
  Receive Date: 20131010
  Receipt Date: 20141008
  Transmission Date: 20150529
  Serious: Yes (Hospitalization, Other)
  Sender: FDA-Public Use
  Company Number: ADR-2013-01082

PATIENT
  Age: 47 Year
  Sex: Male

DRUGS (5)
  1. BACLOFEN INTRATHECAL [Suspect]
     Active Substance: BACLOFEN
     Indication: PAIN
  2. BUPIVACAINE [Suspect]
     Active Substance: BUPIVACAINE
  3. HYDROMORPHONE [Suspect]
     Active Substance: HYDROMORPHONE
  4. OXYCONTIN [Suspect]
     Active Substance: OXYCODONE HYDROCHLORIDE
     Route: 048
  5. CLONIDINE. [Suspect]
     Active Substance: CLONIDINE

REACTIONS (22)
  - Dysgeusia [None]
  - Purulence [None]
  - Heart rate increased [None]
  - Mental status changes [None]
  - Abnormal behaviour [None]
  - Incorrect route of drug administration [None]
  - Pain [None]
  - Nausea [None]
  - Device occlusion [None]
  - Staphylococcal infection [None]
  - Feeling abnormal [None]
  - Pruritus [None]
  - Injection site pain [None]
  - Overdose [None]
  - Drug abuse [None]
  - Injection site discomfort [None]
  - Underdose [None]
  - Drug withdrawal syndrome [None]
  - Loss of consciousness [None]
  - Meningitis [None]
  - Implant site infection [None]
  - Sedation [None]

NARRATIVE: CASE EVENT DATE: 20130620
